FAERS Safety Report 9104783 (Version 2)
Quarter: 2013Q1

REPORT INFORMATION
  Report Type: Spontaneous
  Country: FR (occurrence: FR)
  Receive Date: 20130220
  Receipt Date: 20130220
  Transmission Date: 20140127
  Serious: Yes (Other)
  Sender: FDA-Public Use
  Company Number: FR-JNJFOC-20130204862

PATIENT
  Age: 52 Year
  Sex: Male
  Weight: 93 kg

DRUGS (2)
  1. XARELTO [Suspect]
     Indication: DEEP VEIN THROMBOSIS
     Route: 065
     Dates: start: 20121210
  2. INNOHEP [Concomitant]
     Route: 065

REACTIONS (3)
  - Venous thrombosis [Recovering/Resolving]
  - Gingival bleeding [Recovered/Resolved]
  - Drug ineffective [Unknown]
